FAERS Safety Report 9602467 (Version 6)
Quarter: 2015Q1

REPORT INFORMATION
  Report Type: Spontaneous
  Country: US (occurrence: US)
  Receive Date: 20131007
  Receipt Date: 20150225
  Transmission Date: 20150721
  Serious: Yes (Hospitalization, Other)
  Sender: FDA-Public Use
  Company Number: US-009507513-1310USA000305

PATIENT
  Sex: Female
  Weight: 99.41 kg

DRUGS (5)
  1. FOSAMAX [Suspect]
     Active Substance: ALENDRONATE SODIUM
     Indication: OSTEOPOROSIS
  2. ALENDRONATE SODIUM. [Suspect]
     Active Substance: ALENDRONATE SODIUM
     Dosage: 70 MG, UNK
     Route: 048
     Dates: start: 20080313
  3. ACTOS [Concomitant]
     Active Substance: PIOGLITAZONE HYDROCHLORIDE
     Indication: DIABETES MELLITUS
     Dosage: UNK
     Dates: start: 1999
  4. OS-CAL (CALCIUM CARBONATE) [Concomitant]
     Dosage: 500 MG, QD
     Dates: start: 1980
  5. FOSAMAX [Suspect]
     Active Substance: ALENDRONATE SODIUM
     Indication: OSTEOPENIA
     Dosage: 70 MG, QW
     Route: 048
     Dates: start: 20040820, end: 20110903

REACTIONS (20)
  - Femur fracture [Unknown]
  - Foot fracture [Unknown]
  - Asthma [Unknown]
  - Urinary incontinence [Unknown]
  - Intramedullary rod insertion [Unknown]
  - Fracture nonunion [Unknown]
  - Mitral valve prolapse [Unknown]
  - Spinal operation [Unknown]
  - Depression [Unknown]
  - Hypertension [Unknown]
  - Spinal pain [Unknown]
  - Femur fracture [Unknown]
  - Wrist fracture [Unknown]
  - Open reduction of fracture [Unknown]
  - Hyperlipidaemia [Unknown]
  - Anxiety [Unknown]
  - Intramedullary rod insertion [Unknown]
  - Medical device removal [Unknown]
  - Ankle fracture [Unknown]
  - Osteoarthritis [Unknown]

NARRATIVE: CASE EVENT DATE: 2004
